FAERS Safety Report 6473911-3 (Version None)
Quarter: 2009Q4

REPORT INFORMATION
  Report Type: 
  Country: None (occurrence: None)
  Receive Date: 20091204
  Receipt Date: 20090828
  Transmission Date: 20100525
  Serious: No
  Sender: FDA-Public Use
  Company Number: A0804850A

PATIENT
  Age: 66 Year
  Sex: Female

DRUGS (10)
  1. LAMICTAL [Suspect]
     Dosage: 25MG PER DAY
     Route: 048
     Dates: start: 20090813
  2. BUPROPION HCL [Concomitant]
  3. VITAMIN D [Concomitant]
  4. METHOIN [Concomitant]
  5. LEVOTHYROXINE SODIUM [Concomitant]
  6. CLONAZEPAM [Concomitant]
  7. ACYCLOVIR [Concomitant]
  8. OMEPRAZOLE [Concomitant]
  9. TRAZODONE HCL [Concomitant]
  10. MULTIVITAMIN [Concomitant]

REACTIONS (2)
  - INCREASED APPETITE [None]
  - WEIGHT INCREASED [None]
